FAERS Safety Report 5968422-5 (Version None)
Quarter: 2008Q4

REPORT INFORMATION
  Report Type: 
  Country: None (occurrence: None)
  Receive Date: 20081121
  Receipt Date: 20081121
  Transmission Date: 20090506
  Serious: Yes (Other)
  Sender: FDA-Public Use
  Company Number: None

PATIENT
  Age: 51 Year
  Sex: Female
  Weight: 88.4514 kg

DRUGS (7)
  1. MS CONTIN [Suspect]
     Indication: MYOPATHY
     Dosage: 60 MG 4 TIMES A DAY PO 5 TO 6 YEARS TOTAL
     Route: 048
     Dates: start: 20020720, end: 20081120
  2. MS CONTIN [Suspect]
     Indication: NERVE INJURY
     Dosage: 60 MG 4 TIMES A DAY PO 5 TO 6 YEARS TOTAL
     Route: 048
     Dates: start: 20020720, end: 20081120
  3. MS CONTIN [Suspect]
     Indication: ROAD TRAFFIC ACCIDENT
     Dosage: 60 MG 4 TIMES A DAY PO 5 TO 6 YEARS TOTAL
     Route: 048
     Dates: start: 20020720, end: 20081120
  4. MS CONTIN [Suspect]
     Indication: MYOPATHY
     Dosage: 60 MG 4 TIMES A DAY PO 5 TO 6 YEARS TOTAL
     Route: 048
     Dates: start: 20081016, end: 20081120
  5. MS CONTIN [Suspect]
     Indication: NERVE INJURY
     Dosage: 60 MG 4 TIMES A DAY PO 5 TO 6 YEARS TOTAL
     Route: 048
     Dates: start: 20081016, end: 20081120
  6. MS CONTIN [Suspect]
     Indication: ROAD TRAFFIC ACCIDENT
     Dosage: 60 MG 4 TIMES A DAY PO 5 TO 6 YEARS TOTAL
     Route: 048
     Dates: start: 20081016, end: 20081120
  7. MORPHINE SULF ER [Concomitant]

REACTIONS (5)
  - ASTHENIA [None]
  - INSOMNIA [None]
  - LOSS OF CONSCIOUSNESS [None]
  - PRODUCT QUALITY ISSUE [None]
  - SOMNOLENCE [None]
